FAERS Safety Report 9099218 (Version 2)
Quarter: 2013Q2

REPORT INFORMATION
  Report Type: Report from Study
  Country: ES (occurrence: ES)
  Receive Date: 20130213
  Receipt Date: 20130522
  Transmission Date: 20140414
  Serious: Yes (Other)
  Sender: FDA-Public Use
  Company Number: ES-TEVA-386187USA

PATIENT
  Age: 43 Year
  Sex: Female
  Weight: 70 kg

DRUGS (10)
  1. TREANDA [Suspect]
     Indication: NON-HODGKIN^S LYMPHOMA
     Dosage: UID/QD
     Route: 042
     Dates: start: 20121130, end: 20121201
  2. TREANDA [Suspect]
     Indication: NON-HODGKIN^S LYMPHOMA
     Dosage: DURATION OF TWO DAYS
     Route: 042
  3. ARA-C [Suspect]
     Indication: NON-HODGKIN^S LYMPHOMA
     Dosage: (350 MG/12 HOURS
     Route: 042
     Dates: start: 20121202, end: 20121205
  4. ARA-C [Suspect]
     Indication: NON-HODGKIN^S LYMPHOMA
  5. VP-16 [Suspect]
     Indication: NON-HODGKIN^S LYMPHOMA
     Route: 042
     Dates: start: 20121202, end: 20121205
  6. VP-16 [Suspect]
     Indication: NON-HODGKIN^S LYMPHOMA
  7. MELPHALAN [Suspect]
     Indication: NON-HODGKIN^S LYMPHOMA
     Route: 042
     Dates: start: 20121206
  8. MELPHALAN [Suspect]
     Indication: NON-HODGKIN^S LYMPHOMA
  9. ARANESP [Concomitant]
     Indication: ANAEMIA
     Route: 058
     Dates: start: 20130111
  10. GRANULOCYTE COLONY STIMULATING FACTOR [Concomitant]
     Indication: NEUTROPENIA
     Route: 058
     Dates: start: 20130122, end: 20130205

REACTIONS (1)
  - Engraft failure [Recovered/Resolved]
